FAERS Safety Report 9508189 (Version 1)
Quarter: 2013Q3

REPORT INFORMATION
  Report Type: Spontaneous
  Country: US (occurrence: US)
  Receive Date: 20130909
  Receipt Date: 20130909
  Transmission Date: 20140515
  Serious: Yes (Other)
  Sender: FDA-Public Use
  Company Number: US-PFIZER INC-2013257221

PATIENT
  Age: 50 Year
  Sex: Female
  Weight: 71.2 kg

DRUGS (5)
  1. LYRICA [Suspect]
     Indication: FIBROMYALGIA
     Dosage: 150 MG, 2X/DAY
  2. LYRICA [Suspect]
     Indication: TRIGEMINAL NEURALGIA
  3. LYRICA [Suspect]
     Indication: MIGRAINE
  4. LISINOPRIL [Concomitant]
     Indication: HYPERTENSION
     Dosage: 10 MG, 1X/DAY
  5. SYNTHROID [Concomitant]
     Indication: AUTOIMMUNE THYROIDITIS
     Dosage: 100 UG, 1X/DAY

REACTIONS (7)
  - Intentional drug misuse [Unknown]
  - Weight increased [Unknown]
  - Oedema [Unknown]
  - Insomnia [Unknown]
  - Local swelling [Unknown]
  - Pain in extremity [Unknown]
  - Drug ineffective [Unknown]
